FAERS Safety Report 18901728 (Version 1)
Quarter: 2021Q1

REPORT INFORMATION
  Report Type: Spontaneous
  Country: US (occurrence: US)
  Receive Date: 20210217
  Receipt Date: 20210217
  Transmission Date: 20210420
  Serious: Yes (Other)
  Sender: FDA-Public Use
  Company Number: US-NOVEN PHARMACEUTICALS, INC.-2020US009276

PATIENT
  Age: 4 Year
  Sex: Male

DRUGS (2)
  1. DAYTRANA [Suspect]
     Active Substance: METHYLPHENIDATE
     Indication: ATTENTION DEFICIT HYPERACTIVITY DISORDER
     Dosage: 15 MG, 9 HOURS DAILY
     Route: 062
     Dates: start: 201907
  2. MELATONIN GUMMIES [Concomitant]
     Indication: SLEEP DISORDER
     Dosage: 10 MG
     Route: 048
     Dates: start: 2018

REACTIONS (6)
  - Decreased appetite [Recovered/Resolved]
  - Product quality issue [Unknown]
  - Therapeutic product ineffective [Unknown]
  - Off label use [Not Recovered/Not Resolved]
  - Product adhesion issue [Unknown]
  - Product administration error [Unknown]

NARRATIVE: CASE EVENT DATE: 201907
